FAERS Safety Report 19037008 (Version 1)
Quarter: 2021Q1

REPORT INFORMATION
  Report Type: Other
  Country: GB (occurrence: GB)
  Receive Date: 20210322
  Receipt Date: 20210322
  Transmission Date: 20210420
  Serious: Yes (Other)
  Sender: FDA-Public Use
  Company Number: GB-GE HEALTHCARE LIFE SCIENCES-2021CSU001325

PATIENT

DRUGS (2)
  1. OMNIPAQUE [Suspect]
     Active Substance: IOHEXOL
     Indication: PRODUCT USED FOR UNKNOWN INDICATION
  2. OMNIPAQUE [Suspect]
     Active Substance: IOHEXOL
     Indication: DIAGNOSTIC PROCEDURE
     Dosage: 60 ML, SINGLE
     Route: 042
     Dates: start: 20210311, end: 20210311

REACTIONS (4)
  - Sneezing [Recovered/Resolved]
  - Pharyngeal swelling [Recovered/Resolved]
  - Cough [Recovered/Resolved]
  - Throat irritation [Recovered/Resolved]

NARRATIVE: CASE EVENT DATE: 20210311
